FAERS Safety Report 6308746-5 (Version None)
Quarter: 2009Q3

REPORT INFORMATION
  Report Type: 
  Country: None (occurrence: None)
  Receive Date: 20090813
  Receipt Date: 20080227
  Transmission Date: 20100115
  Serious: No
  Sender: FDA-Public Use
  Company Number: US-ALLERGAN-0802327US

PATIENT
  Age: 69 Year
  Sex: Female

DRUGS (2)
  1. COMBIGAN [Suspect]
     Indication: GLAUCOMA
     Dosage: UNK, BID
     Dates: start: 20080101
  2. LUMIGAN [Suspect]
     Indication: GLAUCOMA
     Dosage: UNK, QHS
     Route: 047
     Dates: start: 20060101

REACTIONS (1)
  - BLOOD GLUCOSE INCREASED [None]
